FAERS Safety Report 26090913 (Version 1)
Quarter: 2025Q4

REPORT INFORMATION
  Report Type: Report from Study
  Country: US (occurrence: US)
  Receive Date: 20251126
  Receipt Date: 20251126
  Transmission Date: 20260118
  Serious: No
  Sender: ACADIA PHARMACEUTICALS
  Company Number: US-ACADIA PHARMACEUTICALS INC.-ACA-2025-PIM-012666

PATIENT
  Sex: Female

DRUGS (12)
  1. NUPLAZID [Suspect]
     Active Substance: PIMAVANSERIN TARTRATE
     Indication: Parkinson^s disease
     Dosage: 34 MILLIGRAM, QD
     Route: 048
     Dates: start: 20230413
  2. GABAPENTIN [Concomitant]
     Active Substance: GABAPENTIN
  3. SELEGILINE [Concomitant]
     Active Substance: SELEGILINE
  4. CEPHALEXIN [Concomitant]
     Active Substance: CEPHALEXIN
  5. PRAMIPEXOLE [Concomitant]
     Active Substance: PRAMIPEXOLE
  6. BENZTROPINE [Concomitant]
     Active Substance: BENZTROPINE
  7. HYDROCODONE BITARTRATE AND ACETAMINOPHEN [Concomitant]
     Active Substance: ACETAMINOPHEN\HYDROCODONE BITARTRATE
  8. CELECOXIB [Concomitant]
     Active Substance: CELECOXIB
  9. DULOXETINE [Concomitant]
     Active Substance: DULOXETINE
  10. TRELEGY ELLIPTA [Concomitant]
     Active Substance: FLUTICASONE FUROATE\UMECLIDINIUM BROMIDE\VILANTEROL TRIFENATATE
     Dosage: 200-62.5MCG
  11. METHOCARBAMOL [Concomitant]
     Active Substance: METHOCARBAMOL
  12. ROSUVASTATIN [Concomitant]
     Active Substance: ROSUVASTATIN

REACTIONS (1)
  - Product dose omission issue [Recovered/Resolved]
